FAERS Safety Report 8477681-9 (Version None)
Quarter: 2012Q2

REPORT INFORMATION
  Report Type: 
  Country: None (occurrence: None)
  Receive Date: 20120629
  Receipt Date: 20120618
  Transmission Date: 20120825
  Serious: Yes (Hospitalization)
  Sender: FDA-Public Use
  Company Number: FR-JNJFOC-20120610299

PATIENT
  Sex: Male
  Weight: 31 kg

DRUGS (2)
  1. REMICADE [Suspect]
     Indication: CROHN'S DISEASE
     Route: 042
     Dates: start: 20081213
  2. HUMIRA [Concomitant]
     Dates: start: 20091216

REACTIONS (1)
  - CROHN'S DISEASE [None]
